FAERS Safety Report 26076685 (Version 2)
Quarter: 2025Q4

REPORT INFORMATION
  Report Type: Spontaneous
  Country: EU (occurrence: EU)
  Receive Date: 20251121
  Receipt Date: 20251202
  Transmission Date: 20260118
  Serious: Yes (Other)
  Sender: BridgeBio Pharma
  Company Number: EU-BAYER-2025A150900

PATIENT

DRUGS (5)
  1. ACORAMIDIS [Suspect]
     Active Substance: ACORAMIDIS
     Indication: Cardiac amyloidosis
     Dosage: UNK
     Dates: start: 20250502
  2. JARDIANCE [Concomitant]
     Active Substance: EMPAGLIFLOZIN
  3. EDOXABAN TOSYLATE [Concomitant]
     Active Substance: EDOXABAN TOSYLATE
  4. TORSEMIDE [Concomitant]
     Active Substance: TORSEMIDE
  5. TILIDINE [Concomitant]
     Active Substance: TILIDINE

REACTIONS (1)
  - Osteonecrosis [Unknown]

NARRATIVE: CASE EVENT DATE: 20251001
